FAERS Safety Report 16347664 (Version 1)
Quarter: 2019Q3

REPORT INFORMATION
  Report Type: Spontaneous
  Country: US (occurrence: US)
  Receive Date: 20190522
  Receipt Date: 20190522
  Transmission Date: 20191004
  Serious: Yes (Other)
  Sender: FDA-Public Use
  Company Number: None

PATIENT
  Age: 41 Year
  Sex: Female
  Weight: 61.2 kg

DRUGS (5)
  1. PRO-BIOTICS [Concomitant]
  2. FISH OILS [Concomitant]
  3. SOLOSEC [Suspect]
     Active Substance: SECNIDAZOLE
     Indication: BACTERIAL VAGINOSIS
     Dosage: ?          QUANTITY:1 PACKET;OTHER FREQUENCY:1 TIME DOSE;?
     Route: 048
     Dates: start: 20190519, end: 20190519
  4. FLONASE [Concomitant]
     Active Substance: FLUTICASONE PROPIONATE
  5. MULTI-VITAMINS [Concomitant]

REACTIONS (7)
  - Abdominal pain [None]
  - Abdominal discomfort [None]
  - Abdominal distension [None]
  - Diarrhoea [None]
  - Nausea [None]
  - Dizziness [None]
  - Vomiting [None]

NARRATIVE: CASE EVENT DATE: 20190519
